FAERS Safety Report 10162176 (Version 1)
Quarter: 2014Q2

REPORT INFORMATION
  Report Type: Spontaneous
  Country: US (occurrence: None)
  Receive Date: 20140508
  Receipt Date: 20140508
  Transmission Date: 20141212
  Serious: Yes (Hospitalization)
  Sender: FDA-Public Use
  Company Number: None

PATIENT
  Age: 48 Year
  Sex: Female
  Weight: 80.3 kg

DRUGS (12)
  1. NULOJIX [Suspect]
     Indication: RENAL TRANSPLANT
     Route: 042
     Dates: end: 20140506
  2. CELLCEPT [Suspect]
     Indication: RENAL TRANSPLANT
     Route: 048
     Dates: start: 20140311
  3. BELATACEPT INFUSION [Concomitant]
  4. CIPROFLOXACIN (CIPRO) [Concomitant]
  5. PANTOPRAZOLE (PROTONIX) [Concomitant]
  6. DOCUSATE SODIUM (COLACE) [Concomitant]
  7. SENNOSIDES [Concomitant]
  8. SULFAMETHOXAZOLE-TRIMETHOPRIJM (BACTRIM, SEPTRA) [Concomitant]
  9. ERGOCALCIFEROL (DRISDOL) [Concomitant]
  10. MYCOPHENOLATE (CELLCEPT) [Concomitant]
  11. VALGANCICOLVIR (VALCYTE) [Concomitant]
  12. CLOTRIMAZOLE (MYCELEX) [Concomitant]

REACTIONS (8)
  - Dizziness [None]
  - Vertigo [None]
  - Visual impairment [None]
  - Cerebral amyloid angiopathy [None]
  - Urinary tract infection [None]
  - Glaucoma [None]
  - Diplopia [None]
  - Nuclear magnetic resonance imaging brain abnormal [None]
